FAERS Safety Report 4584334-6 (Version None)
Quarter: 2005Q1

REPORT INFORMATION
  Report Type: 
  Country: None (occurrence: None)
  Receive Date: 20050216
  Receipt Date: 20050208
  Transmission Date: 20050727
  Serious: Yes (Death, Life-Threatening, Other)
  Sender: FDA-Public Use
  Company Number: PHBS2005TR02161

PATIENT
  Age: 11 Year
  Sex: Male

DRUGS (5)
  1. CYCLOSPORINE [Suspect]
     Indication: BONE MARROW TRANSPLANT
     Route: 065
  2. BUSULFAN [Concomitant]
  3. MELPHALAN [Concomitant]
  4. ATGAM [Concomitant]
  5. ANTIBIOTICS [Suspect]

REACTIONS (10)
  - CARDIOMYOPATHY [None]
  - CENTRAL NERVOUS SYSTEM LESION [None]
  - CEREBRAL ATROPHY [None]
  - CEREBRAL INFARCTION [None]
  - CONVULSION [None]
  - EMBOLISM [None]
  - LOSS OF CONSCIOUSNESS [None]
  - NEUROTOXICITY [None]
  - PAPILLOEDEMA [None]
  - PNEUMONIA HERPES VIRAL [None]
